FAERS Safety Report 4621159-7 (Version None)
Quarter: 2005Q1

REPORT INFORMATION
  Report Type: 
  Country: None (occurrence: None)
  Receive Date: 20050328
  Receipt Date: 20050314
  Transmission Date: 20050727
  Serious: Yes (Hospitalization)
  Sender: FDA-Public Use
  Company Number: 2005PK00465

PATIENT
  Age: 68 Year
  Sex: Female
  Weight: 72 kg

DRUGS (5)
  1. NEXIUM [Suspect]
     Indication: ABDOMINAL PAIN UPPER
     Dosage: 1 DF DAILY PO
     Route: 048
     Dates: start: 20050102
  2. EUTHYROX [Concomitant]
  3. VERAPAMIL HENNING [Concomitant]
  4. MYDOCALM [Concomitant]
  5. PARACETAMOL [Concomitant]

REACTIONS (4)
  - DIFFICULTY IN WALKING [None]
  - GROIN PAIN [None]
  - MUSCULOSKELETAL STIFFNESS [None]
  - PAIN IN EXTREMITY [None]
